FAERS Safety Report 7961565-6 (Version None)
Quarter: 2011Q4

REPORT INFORMATION
  Report Type: 
  Country: None (occurrence: None)
  Receive Date: 20111207
  Receipt Date: 20111123
  Transmission Date: 20120403
  Serious: Yes (Death)
  Sender: FDA-Public Use
  Company Number: PHHY2011NL106333

PATIENT
  Sex: Male

DRUGS (3)
  1. ZOMETA [Suspect]
     Indication: PROSTATE CANCER METASTATIC
     Dosage: 4 MG/5ML, ONCE PER 28 DAYS
     Route: 042
     Dates: start: 20090210
  2. ZOMETA [Suspect]
     Dosage: 4 MG/5ML, ONCE PER 28 DAYS
     Route: 042
     Dates: start: 20111123
  3. ZOMETA [Suspect]
     Dosage: 4 MG/5ML, ONCE PER 28 DAYS
     Route: 042
     Dates: start: 20111026

REACTIONS (3)
  - PNEUMONIA [None]
  - NEOPLASM PROGRESSION [None]
  - NEOPLASM MALIGNANT [None]
